FAERS Safety Report 12941293 (Version 2)
Quarter: 2017Q1

REPORT INFORMATION
  Report Type: Spontaneous
  Country: JP (occurrence: JP)
  Receive Date: 20161115
  Receipt Date: 20170113
  Transmission Date: 20170428
  Serious: Yes (Death, Hospitalization, Other)
  Sender: FDA-Public Use
  Company Number: JP-BRISTOL-MYERS SQUIBB COMPANY-BMS-2016-070247

PATIENT
  Age: 79 Year
  Sex: Male

DRUGS (4)
  1. NAIXAN                             /00256201/ [Suspect]
     Active Substance: NAPROXEN
     Indication: TUMOUR ASSOCIATED FEVER
     Dosage: 300 MG, UNK
     Route: 048
     Dates: start: 20160808, end: 20160815
  2. OPDIVO [Suspect]
     Active Substance: NIVOLUMAB
     Indication: NON-SMALL CELL LUNG CANCER RECURRENT
     Dosage: 150 MG, Q2WK
     Route: 041
     Dates: start: 20160720, end: 20160720
  3. OPDIVO [Suspect]
     Active Substance: NIVOLUMAB
     Indication: PRODUCT USED FOR UNKNOWN INDICATION
     Dosage: 150 MG, Q2WK
     Route: 041
     Dates: start: 20160803, end: 20160803
  4. TEPRENONE [Suspect]
     Active Substance: TEPRENONE
     Indication: TUMOUR ASSOCIATED FEVER
     Dosage: 150 MG, UNK
     Route: 048
     Dates: start: 20160808, end: 20160815

REACTIONS (5)
  - Pyrexia [Recovered/Resolved]
  - Oropharyngeal pain [Recovered/Resolved]
  - Pneumonia [Fatal]
  - Influenza [Fatal]
  - Erythema multiforme [Recovering/Resolving]

NARRATIVE: CASE EVENT DATE: 20160720
